FAERS Safety Report 9213507 (Version 1)
Quarter: 2013Q2

REPORT INFORMATION
  Report Type: Spontaneous
  Country: US (occurrence: None)
  Receive Date: 20130405
  Receipt Date: 20130405
  Transmission Date: 20140414
  Serious: Yes (Hospitalization)
  Sender: FDA-Public Use
  Company Number: None

PATIENT
  Age: 72 Year
  Sex: Male

DRUGS (1)
  1. WARFARIN [Suspect]
     Indication: CORONARY ARTERY DISEASE
     Dosage: ~07/20/2012
     Dates: start: 20120720

REACTIONS (7)
  - Fall [None]
  - Blister [None]
  - International normalised ratio increased [None]
  - Haemarthrosis [None]
  - Haematoma [None]
  - Road traffic accident [None]
  - Head injury [None]
